APPROVED DRUG PRODUCT: DIFLUNISAL
Active Ingredient: DIFLUNISAL
Strength: 250MG
Dosage Form/Route: TABLET;ORAL
Application: A074400 | Product #001
Applicant: WATSON LABORATORIES INC
Approved: Jul 17, 1997 | RLD: No | RS: No | Type: DISCN